FAERS Safety Report 11045233 (Version 3)
Quarter: 2015Q3

REPORT INFORMATION
  Report Type: Report from Study
  Country: BR (occurrence: BR)
  Receive Date: 20150417
  Receipt Date: 20150805
  Transmission Date: 20151125
  Serious: Yes (Other)
  Sender: FDA-Public Use
  Company Number: BR-SA-2015SA048058

PATIENT
  Age: 60 Year
  Sex: Male
  Weight: 51 kg

DRUGS (2)
  1. LANTUS SOLOSTAR [Suspect]
     Active Substance: INSULIN GLARGINE
     Indication: TYPE 1 DIABETES MELLITUS
     Route: 058
     Dates: start: 2014
  2. SOLOSTAR [Concomitant]
     Active Substance: DEVICE
     Indication: TYPE 1 DIABETES MELLITUS
     Dates: start: 2014

REACTIONS (13)
  - Hyperglycaemia [Recovering/Resolving]
  - Fall [Unknown]
  - Labyrinthitis [Recovered/Resolved]
  - Accident at work [Unknown]
  - Hernia [Recovering/Resolving]
  - Spinal pain [Not Recovered/Not Resolved]
  - Vomiting [Recovered/Resolved]
  - Hypertensive crisis [Not Recovered/Not Resolved]
  - Pelvic pain [Recovering/Resolving]
  - Pain in extremity [Recovering/Resolving]
  - Dizziness [Recovered/Resolved]
  - Pain in extremity [Not Recovered/Not Resolved]
  - Intervertebral disc protrusion [Unknown]

NARRATIVE: CASE EVENT DATE: 2015
